FAERS Safety Report 4973434-4 (Version None)
Quarter: 2006Q2

REPORT INFORMATION
  Report Type: 
  Country: None (occurrence: None)
  Receive Date: 20060413
  Receipt Date: 20060413
  Transmission Date: 20061013
  Serious: Yes (Death)
  Sender: FDA-Public Use
  Company Number: None

PATIENT
  Age: 46 Year
  Sex: Male
  Weight: 70.1 kg

DRUGS (4)
  1. TENOFOVIR [Suspect]
     Indication: HIV INFECTION
     Dosage: 300 MG  QD  PO
     Route: 048
     Dates: start: 20060215, end: 20060304
  2. EMTRICITABINE [Suspect]
     Indication: HIV INFECTION
     Dosage: 200 MG  QD  PO
     Route: 048
     Dates: start: 20060215, end: 20060304
  3. NEVIRAPINE [Concomitant]
  4. DAPSONE [Concomitant]

REACTIONS (5)
  - ANAEMIA [None]
  - CANDIDIASIS [None]
  - HEPATITIS [None]
  - HYPONATRAEMIA [None]
  - HYPOPHOSPHATAEMIA [None]
